FAERS Safety Report 22333082 (Version 5)
Quarter: 2024Q3

REPORT INFORMATION
  Report Type: Spontaneous
  Country: US (occurrence: US)
  Receive Date: 20230517
  Receipt Date: 20240730
  Transmission Date: 20241017
  Serious: No
  Sender: PFIZER
  Company Number: US-PFIZER INC-PV202300037981

PATIENT
  Age: 71 Year
  Sex: Female

DRUGS (2)
  1. IBRANCE [Suspect]
     Active Substance: PALBOCICLIB
     Dosage: TAKING THE PILLS FOR 21 DAYS
  2. IBRANCE [Suspect]
     Active Substance: PALBOCICLIB
     Dosage: 75 MG, CYCLIC (10 DAYS INSTEAD OF 21 DAYS IN A CYCLE/ ON DAYS 1-10  OF A 28 DAY CYCLE)
     Route: 048

REACTIONS (2)
  - Full blood count decreased [Unknown]
  - Off label use [Unknown]
